FAERS Safety Report 19097067 (Version 1)
Quarter: 2021Q2

REPORT INFORMATION
  Report Type: Spontaneous
  Country: US (occurrence: US)
  Receive Date: 20210406
  Receipt Date: 20210406
  Transmission Date: 20210717
  Serious: Yes (Hospitalization)
  Sender: FDA-Public Use
  Company Number: None

PATIENT
  Age: 3 Year
  Sex: Male
  Weight: 13.3 kg

DRUGS (4)
  1. 5?FLUOROURACIL (5?FU) [Suspect]
     Active Substance: FLUOROURACIL
     Dates: end: 20201022
  2. DOXORUBICIN HYDROCHLORIDE. [Suspect]
     Active Substance: DOXORUBICIN HYDROCHLORIDE
     Dates: end: 20201023
  3. CISPLATIN. [Suspect]
     Active Substance: CISPLATIN
     Dates: end: 20201022
  4. VINCRISTINE SULFATE. [Suspect]
     Active Substance: VINCRISTINE SULFATE
     Dates: end: 20201022

REACTIONS (5)
  - Neutropenia [None]
  - Pancytopenia [None]
  - Constipation [None]
  - Pyrexia [None]
  - Haemoglobin decreased [None]

NARRATIVE: CASE EVENT DATE: 20201030
